FAERS Safety Report 8830103 (Version 2)
Quarter: 2013Q1

REPORT INFORMATION
  Report Type: Spontaneous
  Country: US (occurrence: None)
  Receive Date: 20121004
  Receipt Date: 20130305
  Transmission Date: 20140127
  Serious: Yes (Hospitalization, Other)
  Sender: FDA-Public Use
  Company Number: AUR-APL-2012-04226

PATIENT
  Age: 54 Year
  Sex: Male
  Weight: 106.6 kg

DRUGS (3)
  1. METFORMIN (METFORMIN) [Suspect]
     Indication: TYPE 2 DIABETES MELLITUS
  2. GLIMEPIRIDE [Suspect]
     Indication: TYPE 2 DIABETES MELLITUS
  3. EXENATIDE [Suspect]
     Indication: TYPE 2 DIABETES MELLITUS

REACTIONS (6)
  - Abdominal pain [None]
  - Decreased appetite [None]
  - Weight decreased [None]
  - Eating disorder [None]
  - Pancreatitis [None]
  - Pancreatic insufficiency [None]
